FAERS Safety Report 4645802-1 (Version None)
Quarter: 2005Q2

REPORT INFORMATION
  Report Type: 
  Country: None (occurrence: None)
  Receive Date: 20050425
  Receipt Date: 20050418
  Transmission Date: 20051028
  Serious: Yes (Death)
  Sender: FDA-Public Use
  Company Number: 200510146BYL

PATIENT
  Age: 79 Year
  Sex: Male

DRUGS (5)
  1. CIPROFLOXACIN HCL [Suspect]
     Indication: INFECTION
     Dosage: 300 MG, BID, INTRVENOUS DRIP
     Route: 042
     Dates: start: 20040430, end: 20040509
  2. MAXIPIME [Concomitant]
  3. DOPAMINE [Concomitant]
  4. ZANTAC [Concomitant]
  5. PIPC [Concomitant]

REACTIONS (2)
  - GENERAL PHYSICAL HEALTH DETERIORATION [None]
  - PNEUMOTHORAX [None]
